FAERS Safety Report 16045717 (Version 7)
Quarter: 2020Q1

REPORT INFORMATION
  Report Type: Report from Study
  Country: TR (occurrence: TR)
  Receive Date: 20190307
  Receipt Date: 20200313
  Transmission Date: 20200409
  Serious: Yes (Hospitalization)
  Sender: FDA-Public Use
  Company Number: TR-ROCHE-2105811

PATIENT
  Age: 65 Year
  Sex: Female
  Weight: 66.5 kg

DRUGS (68)
  1. PALONOSETRON. [Concomitant]
     Active Substance: PALONOSETRON HYDROCHLORIDE
     Indication: PREMEDICATION
     Route: 065
     Dates: start: 20180406, end: 20180406
  2. DEXAMETHASONE. [Concomitant]
     Active Substance: DEXAMETHASONE
     Route: 042
     Dates: start: 20180810, end: 20180810
  3. FILGRASTIM [Concomitant]
     Active Substance: FILGRASTIM
     Indication: NEUTROPHIL COUNT DECREASED
     Route: 065
     Dates: start: 20180416, end: 20180417
  4. FILGRASTIM [Concomitant]
     Active Substance: FILGRASTIM
     Indication: ANAEMIA
     Route: 065
     Dates: start: 20180608, end: 20180608
  5. LEVOTHYROXINE. [Concomitant]
     Active Substance: LEVOTHYROXINE
     Indication: HYPOTHYROIDISM
     Route: 065
     Dates: start: 1995
  6. PANTOPRAZOLE [Concomitant]
     Active Substance: PANTOPRAZOLE
     Route: 065
     Dates: start: 20180813, end: 20180830
  7. SUCRALFATE. [Concomitant]
     Active Substance: SUCRALFATE
     Route: 065
     Dates: start: 20180528, end: 20180604
  8. PRILOCAINE [Concomitant]
     Active Substance: PRILOCAINE
     Indication: ANAESTHESIA
     Route: 065
     Dates: start: 20180504, end: 20180518
  9. CARBOPLATIN. [Suspect]
     Active Substance: CARBOPLATIN
     Indication: OVARIAN CANCER
     Dosage: AT A DOSE TO ACHIEVE A TARGET AREA UNDER THE CURVE (AUC) OF 6 MILLIGRAMS PER MILLILITER*MINUTE (MG/M
     Route: 042
     Dates: start: 20180406
  10. PALONOSETRON. [Concomitant]
     Active Substance: PALONOSETRON HYDROCHLORIDE
     Route: 065
     Dates: start: 20180710, end: 20180710
  11. FILGRASTIM [Concomitant]
     Active Substance: FILGRASTIM
     Dosage: PRN (AS NEEDED)
     Route: 058
     Dates: start: 20180810, end: 20180810
  12. WARFARIN SODIUM. [Concomitant]
     Active Substance: WARFARIN SODIUM
     Indication: THROMBOCYTOPENIA
     Route: 065
     Dates: start: 20180612, end: 20180628
  13. LEVOTHYROXINE SODIUM. [Concomitant]
     Active Substance: LEVOTHYROXINE SODIUM
     Indication: HYPOTHYROIDISM
     Dosage: PRN (AS NEEDED)
     Route: 048
     Dates: start: 20180612, end: 20180628
  14. MEGESTROL ACETATE. [Concomitant]
     Active Substance: MEGESTROL ACETATE
     Indication: DECREASED APPETITE
     Route: 065
     Dates: start: 20180528, end: 20180604
  15. TRANEXAMIC ACID. [Concomitant]
     Active Substance: TRANEXAMIC ACID
     Dosage: RISK OF BLEEDING
     Route: 065
     Dates: start: 20180813, end: 20180830
  16. MEFENAMIC ACID. [Concomitant]
     Active Substance: MEFENAMIC ACID
     Indication: HEADACHE
     Route: 065
     Dates: start: 20181130
  17. ORNIDAZOLE [Concomitant]
     Active Substance: ORNIDAZOLE
     Indication: DIARRHOEA
     Route: 065
     Dates: start: 20180416, end: 20180419
  18. PACLITAXEL. [Suspect]
     Active Substance: PACLITAXEL
     Indication: OVARIAN CANCER
     Dosage: ON DAY 1 OF EACH 21-DAY CYCLE, RECENT DOSE ON  25/MAY/2018 ON 230 MG (ADVERSE EVENT: VOMITING).?DOSE
     Route: 042
     Dates: start: 20180406
  19. AMITRIPTYLINE HCL [Concomitant]
     Active Substance: AMITRIPTYLINE
     Indication: HEADACHE
     Route: 065
     Dates: start: 20181130
  20. PALONOSETRON. [Concomitant]
     Active Substance: PALONOSETRON HYDROCHLORIDE
     Indication: PAIN
     Route: 065
     Dates: start: 20180427, end: 20180427
  21. DEXAMETHASONE. [Concomitant]
     Active Substance: DEXAMETHASONE
     Indication: PREMEDICATION
     Route: 042
     Dates: start: 20180406, end: 20180406
  22. LOPERAMIDE [Concomitant]
     Active Substance: LOPERAMIDE
     Route: 065
     Dates: start: 20180504, end: 20180518
  23. WARFARIN SODIUM. [Concomitant]
     Active Substance: WARFARIN SODIUM
     Indication: EMBOLISM
     Route: 065
     Dates: start: 20180813, end: 20180830
  24. LEVOTHYROXINE SODIUM. [Concomitant]
     Active Substance: LEVOTHYROXINE SODIUM
     Route: 065
     Dates: start: 20180528, end: 20180604
  25. FENTANYL. [Concomitant]
     Active Substance: FENTANYL
     Indication: PAIN
     Route: 062
     Dates: start: 20180731
  26. FLUCONAZOLE. [Concomitant]
     Active Substance: FLUCONAZOLE
     Indication: INFECTION
     Route: 065
     Dates: start: 20180504, end: 20180518
  27. MAGNESIUM SULPHATE [MAGNESIUM SULFATE] [Concomitant]
     Active Substance: MAGNESIUM SULFATE
     Route: 065
     Dates: start: 20180504, end: 20180518
  28. PIPERACILLIN. [Concomitant]
     Active Substance: PIPERACILLIN SODIUM
     Indication: PYREXIA
     Route: 065
     Dates: start: 20180813, end: 20180830
  29. PALONOSETRON. [Concomitant]
     Active Substance: PALONOSETRON HYDROCHLORIDE
     Route: 065
     Dates: start: 20180810, end: 20180810
  30. RANITIDIN [Concomitant]
     Active Substance: RANITIDINE HYDROCHLORIDE
     Indication: PREMEDICATION
     Route: 065
     Dates: start: 20180406, end: 20180406
  31. RANITIDIN [Concomitant]
     Active Substance: RANITIDINE HYDROCHLORIDE
     Route: 065
     Dates: start: 20180810, end: 20180810
  32. DEXAMETHASONE. [Concomitant]
     Active Substance: DEXAMETHASONE
     Route: 042
     Dates: start: 20180427, end: 20180427
  33. TRAMADOL HCL [Concomitant]
     Active Substance: TRAMADOL HYDROCHLORIDE
     Indication: PAIN
     Route: 065
     Dates: start: 20180612, end: 20180628
  34. LEVOTHYROXINE SODIUM. [Concomitant]
     Active Substance: LEVOTHYROXINE SODIUM
     Route: 065
     Dates: start: 20180504, end: 20180518
  35. PANTOPRAZOLE [Concomitant]
     Active Substance: PANTOPRAZOLE
     Route: 065
     Dates: start: 20180612, end: 20180628
  36. PANTOPRAZOLE [Concomitant]
     Active Substance: PANTOPRAZOLE
     Route: 065
     Dates: start: 20180528, end: 20180604
  37. TAZOBACTAM [Concomitant]
     Active Substance: TAZOBACTAM
     Indication: INFECTION
     Route: 065
     Dates: start: 20180504, end: 20180518
  38. METOCLOPRAMIDE. [Concomitant]
     Active Substance: METOCLOPRAMIDE
  39. RANITIDIN [Concomitant]
     Active Substance: RANITIDINE HYDROCHLORIDE
     Route: 065
     Dates: start: 20180911, end: 20180911
  40. DEXAMETHASONE. [Concomitant]
     Active Substance: DEXAMETHASONE
     Route: 042
     Dates: start: 20180710, end: 20180710
  41. DEXAMETHASONE. [Concomitant]
     Active Substance: DEXAMETHASONE
     Route: 042
     Dates: start: 20180911, end: 20180911
  42. BLOOD [Concomitant]
     Active Substance: WHOLE BLOOD
     Indication: ANAEMIA
     Route: 065
     Dates: start: 20180417, end: 20180417
  43. PANTOPRAZOLE [Concomitant]
     Active Substance: PANTOPRAZOLE
     Route: 065
     Dates: start: 20180504, end: 20180518
  44. SUCRALFATE. [Concomitant]
     Active Substance: SUCRALFATE
     Route: 065
     Dates: start: 20180416, end: 20180419
  45. MEROPENEM. [Concomitant]
     Active Substance: MEROPENEM
     Indication: INFECTION
     Route: 065
     Dates: start: 20180504, end: 20180518
  46. SODIUM AMIDOTRIZOATE [Concomitant]
     Route: 065
     Dates: start: 20180509, end: 20180509
  47. ERYTHROCYTES [Concomitant]
     Active Substance: HUMAN RED BLOOD CELL
     Dosage: SUSPENSION
     Route: 065
  48. TROSPIUM CHLORIDE. [Concomitant]
     Active Substance: TROSPIUM CHLORIDE
     Indication: CYSTITIS
     Route: 065
     Dates: start: 20190624
  49. LEVOTIROXIN [Concomitant]
     Active Substance: LEVOTHYROXINE SODIUM
  50. PARACETAMOL [Concomitant]
     Active Substance: ACETAMINOPHEN
     Indication: ARTHRALGIA
     Route: 065
     Dates: start: 20180427
  51. TRAMADOL HCL [Concomitant]
     Active Substance: TRAMADOL HYDROCHLORIDE
     Route: 065
     Dates: start: 20180504, end: 20180518
  52. LANSOPRAZOLE. [Concomitant]
     Active Substance: LANSOPRAZOLE
     Route: 065
     Dates: start: 20180731
  53. LINEZOLID. [Concomitant]
     Active Substance: LINEZOLID
     Indication: SKIN INFECTION
     Route: 065
     Dates: start: 20180813, end: 20180830
  54. BLINDED ATEZOLIZUMAB [Suspect]
     Active Substance: ATEZOLIZUMAB
     Indication: OVARIAN CANCER
     Dosage: DATE OF MOST RECENT DOSE OF BLINDED ATEZOLIZUMAB PRIOR TO AE ONSET: 25/MAY/2018?DATE OF MOST RECENT
     Route: 042
     Dates: start: 20180406
  55. BEVACIZUMAB. [Suspect]
     Active Substance: BEVACIZUMAB
     Indication: OVARIAN CANCER
     Dosage: DATE OF MOST RECENT DOSE PRIOR TO SAE ONSET 25/MAY/2018, 900 MG.
     Route: 042
     Dates: start: 20180427
  56. PALONOSETRON. [Concomitant]
     Active Substance: PALONOSETRON HYDROCHLORIDE
     Route: 065
     Dates: start: 20180911, end: 20180911
  57. FILGRASTIM [Concomitant]
     Active Substance: FILGRASTIM
     Dosage: PRN (AS NEEDED)
     Route: 058
     Dates: start: 20180504, end: 20180518
  58. DESLORATADINE. [Concomitant]
     Active Substance: DESLORATADINE
     Indication: RHINITIS ALLERGIC
     Route: 065
     Dates: start: 2012
  59. TROSPIUM [Concomitant]
     Active Substance: TROSPIUM
     Indication: URINARY INCONTINENCE
     Route: 065
     Dates: start: 201712
  60. LOPERAMIDE [Concomitant]
     Active Substance: LOPERAMIDE
     Indication: DIARRHOEA
     Route: 065
     Dates: start: 20180518
  61. SUCRALFATE. [Concomitant]
     Active Substance: SUCRALFATE
     Route: 065
     Dates: start: 20180504, end: 20180518
  62. METRONIDAZOLE. [Concomitant]
     Active Substance: METRONIDAZOLE
     Indication: INFECTION
     Route: 065
     Dates: start: 20180504, end: 20180518
  63. RANITIDIN [Concomitant]
     Active Substance: RANITIDINE HYDROCHLORIDE
     Route: 065
     Dates: start: 20180427, end: 20180427
  64. RANITIDIN [Concomitant]
     Active Substance: RANITIDINE HYDROCHLORIDE
     Route: 065
     Dates: start: 20180710, end: 20180710
  65. CETIRIZINE DIHYDROCHLORIDE [Concomitant]
     Active Substance: CETIRIZINE HYDROCHLORIDE
     Indication: RASH PUSTULAR
     Route: 065
     Dates: start: 20180430
  66. PARACETAMOL [Concomitant]
     Active Substance: ACETAMINOPHEN
     Route: 065
     Dates: start: 20180813, end: 20180830
  67. TEICOPLANIN [Concomitant]
     Active Substance: TEICOPLANIN
     Indication: INFECTION
     Route: 065
     Dates: start: 20180504, end: 20180518
  68. PIPERACILLIN. [Concomitant]
     Active Substance: PIPERACILLIN SODIUM
     Indication: INFECTION
     Route: 065
     Dates: start: 20180504, end: 20180518

REACTIONS (10)
  - Diarrhoea [Recovered/Resolved]
  - Embolism [Recovering/Resolving]
  - Febrile neutropenia [Recovered/Resolved]
  - Pyrexia [Recovered/Resolved]
  - Diarrhoea [Recovered/Resolved]
  - Vomiting [Recovered/Resolved]
  - Mucosal inflammation [Recovered/Resolved]
  - Platelet count decreased [Recovered/Resolved]
  - International normalised ratio increased [Recovered/Resolved]
  - Vomiting [Recovered/Resolved]

NARRATIVE: CASE EVENT DATE: 20180407
